FAERS Safety Report 4832302-9 (Version None)
Quarter: 2005Q4

REPORT INFORMATION
  Report Type: 
  Country: None (occurrence: None)
  Receive Date: 20051116
  Receipt Date: 20051116
  Transmission Date: 20060501
  Serious: Yes (Hospitalization)
  Sender: FDA-Public Use
  Company Number: None

PATIENT
  Age: 65 Year
  Sex: Female
  Weight: 78.4723 kg

DRUGS (1)
  1. AMIODARONE HCL [Suspect]
     Dosage: 100 MG DAILY PO
     Route: 048

REACTIONS (1)
  - PANCREATITIS ACUTE [None]
